FAERS Safety Report 7845586-X (Version None)
Quarter: 2011Q4

REPORT INFORMATION
  Report Type: 
  Country: None (occurrence: None)
  Receive Date: 20111018
  Receipt Date: 20111011
  Transmission Date: 20120403
  Serious: Yes (Other)
  Sender: FDA-Public Use
  Company Number: 2011SP007146

PATIENT
  Age: 22 Year
  Sex: Female
  Weight: 92.9874 kg

DRUGS (1)
  1. IMPLANON [Suspect]
     Indication: CONTRACEPTION
     Dosage: ;SBDE
     Dates: start: 20110125

REACTIONS (3)
  - ALOPECIA [None]
  - VISUAL ACUITY REDUCED [None]
  - VISION BLURRED [None]
